FAERS Safety Report 4946280-5 (Version None)
Quarter: 2006Q1

REPORT INFORMATION
  Report Type: 
  Country: None (occurrence: None)
  Receive Date: 20060316
  Receipt Date: 20060316
  Transmission Date: 20060701
  Serious: Yes (Hospitalization)
  Sender: FDA-Public Use
  Company Number: None

PATIENT
  Sex: Female
  Weight: 53.5244 kg

DRUGS (5)
  1. RITUXIMAB [Suspect]
     Dosage: VARIES FOR EACH DRUG EVERY 14 DAYS IV
     Route: 042
     Dates: start: 20050819, end: 20051118
  2. VINCRISTINE [Suspect]
     Dosage: VARIES FOR EACH DRUG EVERY 14 DAYS IV
     Route: 042
     Dates: start: 20050819, end: 20051118
  3. DOXORUBICIN HCL [Suspect]
     Dosage: VARIES FOR EACH DRUG EVERY 14 DAYS IV
     Route: 042
     Dates: start: 20050819, end: 20051118
  4. CYTOXAN [Suspect]
     Dosage: VARIES FOR EACH DRUG EVERY 14 DAYS IV
     Route: 042
     Dates: start: 20050819, end: 20051118
  5. PREDNISONE TAB [Suspect]
     Dosage: VARIES FOR EACH DRUG EVERY 14 DAYS IV
     Route: 042
     Dates: start: 20050819, end: 20051118

REACTIONS (7)
  - ABDOMINAL PAIN [None]
  - FEBRILE NEUTROPENIA [None]
  - LARGE INTESTINE PERFORATION [None]
  - NEOPLASM [None]
  - PELVIC ABSCESS [None]
  - RESPIRATORY FAILURE [None]
  - SEPSIS [None]
